FAERS Safety Report 26164023 (Version 1)
Quarter: 2025Q4

REPORT INFORMATION
  Report Type: Spontaneous
  Country: CN (occurrence: CN)
  Receive Date: 20251216
  Receipt Date: 20251216
  Transmission Date: 20260118
  Serious: Yes (Hospitalization)
  Sender: BAYER HEALTHCARE PHARMACEUTICALS INC.
  Company Number: CN-BAYER-2025A163798

PATIENT
  Age: 80 Year
  Sex: Female
  Weight: 57 kg

DRUGS (13)
  1. GLUCOBAY [Suspect]
     Active Substance: ACARBOSE
     Indication: Type 2 diabetes mellitus
     Dosage: 50 MG, TID
     Route: 048
     Dates: start: 2025, end: 20251109
  2. GLUCOBAY [Suspect]
     Active Substance: ACARBOSE
     Indication: Type 2 diabetes mellitus
     Dosage: 600 MG, QD
     Route: 048
     Dates: start: 20251110, end: 20251110
  3. LINAGLIPTIN [Suspect]
     Active Substance: LINAGLIPTIN
     Indication: Type 2 diabetes mellitus
     Dosage: 5 MG, QD
     Route: 048
     Dates: start: 2025, end: 20251109
  4. LINAGLIPTIN [Suspect]
     Active Substance: LINAGLIPTIN
     Indication: Type 2 diabetes mellitus
     Dosage: 25 MG, QD
     Route: 048
     Dates: start: 20251110, end: 20251110
  5. LETROZOLE [Suspect]
     Active Substance: LETROZOLE
     Indication: Immune enhancement therapy
     Dosage: 2.5 MG, QD
     Route: 048
     Dates: start: 2025, end: 20251109
  6. LETROZOLE [Suspect]
     Active Substance: LETROZOLE
     Indication: Immune enhancement therapy
     Dosage: 15 MG, QD
     Route: 048
     Dates: start: 20251110, end: 20251110
  7. HYDROCHLOROTHIAZIDE [Suspect]
     Active Substance: HYDROCHLOROTHIAZIDE
     Indication: Hypertension
     Dosage: 200 MG, QD
     Route: 048
     Dates: start: 20251110, end: 20251110
  8. NIFEDIPINE [Suspect]
     Active Substance: NIFEDIPINE
     Indication: Hypertension
     Dosage: 30 MG, QD
     Route: 048
     Dates: start: 2025, end: 20251109
  9. NIFEDIPINE [Suspect]
     Active Substance: NIFEDIPINE
     Indication: Hypertension
     Dosage: 120 MG, QD
     Route: 048
     Dates: start: 20251110, end: 20251110
  10. CLOPIDOGREL BISULFATE [Suspect]
     Active Substance: CLOPIDOGREL BISULFATE
     Indication: Antiplatelet therapy
     Dosage: 50 MG, QD
     Route: 048
     Dates: start: 2025, end: 20251109
  11. CLOPIDOGREL BISULFATE [Suspect]
     Active Substance: CLOPIDOGREL BISULFATE
     Indication: Antiplatelet therapy
     Dosage: 300 MG, QD
     Route: 048
     Dates: start: 20251110, end: 20251110
  12. LIPITOR [Suspect]
     Active Substance: ATORVASTATIN CALCIUM
     Indication: Lipids abnormal
     Dosage: 10 MG, QD
     Route: 048
     Dates: start: 2025, end: 20251109
  13. LIPITOR [Suspect]
     Active Substance: ATORVASTATIN CALCIUM
     Indication: Lipids abnormal
     Dosage: 60 MG, QD
     Route: 048
     Dates: start: 20251110, end: 20251110

REACTIONS (10)
  - Toxicity to various agents [Recovering/Resolving]
  - Eructation [Recovering/Resolving]
  - Gastrooesophageal reflux disease [Recovering/Resolving]
  - Nausea [Recovering/Resolving]
  - Decreased appetite [Recovering/Resolving]
  - Hepatic function abnormal [None]
  - Sinus tachycardia [None]
  - Electrocardiogram ST-T segment abnormal [None]
  - Respiratory rate increased [None]
  - Increased dose administered [None]

NARRATIVE: CASE EVENT DATE: 20251110
